FAERS Safety Report 4713892-3 (Version None)
Quarter: 2005Q3

REPORT INFORMATION
  Report Type: 
  Country: None (occurrence: None)
  Receive Date: 20050712
  Receipt Date: 20050629
  Transmission Date: 20060218
  Serious: Yes (Other)
  Sender: FDA-Public Use
  Company Number: US_0507119740

PATIENT
  Age: 76 Year
  Sex: Male
  Weight: 96 kg

DRUGS (12)
  1. HUMALOG-HUMAN INSULIN (RDNA): 25% LISPRO, 7% NPL (LI [Suspect]
     Indication: DIABETES MELLITUS NON-INSULIN-DEPENDENT
     Dosage: 25 U/2 DAY
     Dates: start: 20050624, end: 20050628
  2. ASPIRIN [Concomitant]
  3. COUMADIN [Concomitant]
  4. DIGITEK (DIGOXIN /00017701/) [Concomitant]
  5. PERSANTINE [Concomitant]
  6. EDECRIN (ETACRYNIC ACID) [Concomitant]
  7. ISOSORBIDE DINITRATE [Concomitant]
  8. SYNTHROID [Concomitant]
  9. MIRAPEX [Concomitant]
  10. STARLIX [Concomitant]
  11. TRICOR [Concomitant]
  12. LANTUS [Concomitant]

REACTIONS (3)
  - DRUG EFFECT DECREASED [None]
  - DYSPNOEA [None]
  - URTICARIA [None]
